FAERS Safety Report 8292262-8 (Version None)
Quarter: 2012Q2

REPORT INFORMATION
  Report Type: 
  Country: None (occurrence: None)
  Receive Date: 20120417
  Receipt Date: 20120413
  Transmission Date: 20120825
  Serious: Yes (Hospitalization)
  Sender: FDA-Public Use
  Company Number: US-GILEAD-2012-0053014

PATIENT
  Sex: Female

DRUGS (2)
  1. EPOPROSTENOL SODIUM [Concomitant]
  2. LETAIRIS [Suspect]
     Indication: PULMONARY HYPERTENSION
     Dosage: 5 MG, UNK
     Route: 048
     Dates: start: 20110813

REACTIONS (2)
  - ABDOMINAL PAIN [None]
  - VOMITING [None]
